FAERS Safety Report 13077634 (Version 1)
Quarter: 2016Q4

REPORT INFORMATION
  Report Type: Report from Study
  Country: NL (occurrence: NL)
  Receive Date: 20161231
  Receipt Date: 20161231
  Transmission Date: 20170207
  Serious: Yes (Other)
  Sender: FDA-Public Use
  Company Number: NL-AMGEN-NLDSL2016183384

PATIENT
  Age: 46 Year
  Sex: Female

DRUGS (20)
  1. VESICARE [Concomitant]
     Active Substance: SOLIFENACIN SUCCINATE
     Dosage: 10 MG, QD
     Dates: start: 20161026
  2. SODIUM LAURYL SULFATE W/SORBITOL [Concomitant]
     Dosage: 9/625MG/ML, UNK
     Dates: start: 20160901
  3. LEVOCETIRIZINE DIHYDROCHLORIDE. [Concomitant]
     Active Substance: LEVOCETIRIZINE DIHYDROCHLORIDE
     Dosage: 5 MG, QD
     Dates: start: 20160926
  4. METOCLOPRAMIDE. [Concomitant]
     Active Substance: METOCLOPRAMIDE
     Dosage: 10 MG, UNK
     Dates: start: 20161208
  5. XGEVA [Suspect]
     Active Substance: DENOSUMAB
     Indication: BREAST CANCER METASTATIC
     Dosage: 70 MG/ML FL 1.70 ML, UNK
     Route: 058
     Dates: start: 20160905
  6. TRIMETHOPRIM. [Concomitant]
     Active Substance: TRIMETHOPRIM
     Dosage: 100 MG, QD
  7. ERIBULIN [Concomitant]
     Active Substance: ERIBULIN
     Dosage: UNK
     Dates: start: 20161208
  8. DEXAMETHASON [Concomitant]
     Active Substance: DEXAMETHASONE
     Dosage: 4 MG, QD
     Dates: start: 20161208
  9. ANASTRAZOL RONTAG [Concomitant]
     Dosage: UNK
     Dates: start: 20131120
  10. CALCIUM CARBONATE W/COLECALCIFEROL [Concomitant]
     Active Substance: CALCIUM CARBONATE\CHOLECALCIFEROL
     Dosage: 2,5G/880IE, QD
     Dates: start: 20160926
  11. XGEVA [Suspect]
     Active Substance: DENOSUMAB
     Indication: METASTASES TO BONE
     Dosage: 120 MG, Q4WK
     Route: 058
     Dates: start: 20130201
  12. CHLORHEXIDINE W/LIDOCAINE [Concomitant]
     Dosage: 20.9/0,523MG/ML UNK
     Dates: start: 20160901
  13. COLECALCIFEROL [Concomitant]
     Active Substance: CHOLECALCIFEROL
     Dosage: 880 IE, QD
     Dates: start: 20160926
  14. DALTEPARINE SODIQUE [Concomitant]
     Dosage: 2500IE=0.2ML, QD
     Dates: start: 20151022
  15. FULVESTRANT [Concomitant]
     Active Substance: FULVESTRANT
     Dosage: UNK
     Dates: start: 20160222
  16. SOLIFENACINE [Concomitant]
     Dosage: 5 MG, QD
     Dates: start: 20160901
  17. PACLITAXEL. [Concomitant]
     Active Substance: PACLITAXEL
  18. VINORELBINE [Concomitant]
     Active Substance: VINORELBINE\VINORELBINE TARTRATE
     Indication: BREAST CANCER METASTATIC
     Dosage: UNK
     Dates: start: 20160616
  19. MUPIROCINE [Concomitant]
     Dosage: 20 MG/G, BID
  20. CAPECITABINE. [Concomitant]
     Active Substance: CAPECITABINE

REACTIONS (9)
  - Neutropenia [Unknown]
  - Pseudomonas infection [Unknown]
  - Inappropriate schedule of drug administration [Unknown]
  - Pleural effusion [Unknown]
  - Injury [Unknown]
  - Malignant neoplasm progression [Unknown]
  - Peritonitis bacterial [Unknown]
  - Metastases to bone [Unknown]
  - Ascites [Unknown]

NARRATIVE: CASE EVENT DATE: 20140401
